FAERS Safety Report 23623222 (Version 1)
Quarter: 2024Q1

REPORT INFORMATION
  Report Type: Spontaneous
  Country: NL (occurrence: NL)
  Receive Date: 20240312
  Receipt Date: 20240312
  Transmission Date: 20240409
  Serious: Yes (Other)
  Sender: FDA-Public Use
  Company Number: NL-ORPHANEU-2024001522

PATIENT

DRUGS (2)
  1. SILTUXIMAB [Suspect]
     Active Substance: SILTUXIMAB
     Indication: Cytokine release syndrome
     Dosage: 11MG/KG WAS SUBSEQUENTLY GIVEN
  2. SILTUXIMAB [Suspect]
     Active Substance: SILTUXIMAB
     Indication: Off label use

REACTIONS (3)
  - Neurotoxicity [Unknown]
  - Atrial fibrillation [Recovered/Resolved]
  - Drug effective for unapproved indication [Recovered/Resolved]
